FAERS Safety Report 6898922-5 (Version None)
Quarter: 2010Q3

REPORT INFORMATION
  Report Type: 
  Country: None (occurrence: None)
  Receive Date: 20100802
  Receipt Date: 20071226
  Transmission Date: 20110219
  Serious: No
  Sender: FDA-Public Use
  Company Number: US-PFIZER INC-2007108375

PATIENT
  Sex: Female
  Weight: 117.9 kg

DRUGS (13)
  1. LYRICA [Suspect]
     Indication: FIBROMYALGIA
     Dates: start: 20070101
  2. EZETIMIBE [Concomitant]
  3. REGLAN [Concomitant]
  4. LORATADINE [Concomitant]
  5. LISINOPRIL [Concomitant]
  6. AMLODIPINE [Concomitant]
  7. LANTUS [Concomitant]
  8. ATENOLOL [Concomitant]
  9. NOVOLOG [Concomitant]
  10. ACETYLSALICYLIC ACID SRT [Concomitant]
  11. SIMVASTATIN [Concomitant]
  12. MOTRIN [Concomitant]
  13. WELLBUTRIN [Concomitant]

REACTIONS (1)
  - DIPLOPIA [None]
